FAERS Safety Report 24124113 (Version 3)
Quarter: 2024Q3

REPORT INFORMATION
  Report Type: Spontaneous
  Country: FR (occurrence: FR)
  Receive Date: 20240723
  Receipt Date: 20240820
  Transmission Date: 20241017
  Serious: Yes (Congenital Anomaly)
  Sender: BOEHRINGER INGELHEIM
  Company Number: None

PATIENT
  Sex: Female
  Weight: 2.7 kg

DRUGS (14)
  1. IPRATROPIUM BROMIDE\FENOTEROL HYDROBROMIDE [Suspect]
     Active Substance: FENOTEROL HYDROBROMIDE\IPRATROPIUM BROMIDE
     Indication: Cystic fibrosis
     Route: 064
     Dates: start: 20240516
  2. SPIRIVA RESPIMAT [Suspect]
     Active Substance: TIOTROPIUM BROMIDE
     Indication: Cystic fibrosis
     Dosage: 2 ANZ
     Route: 064
     Dates: start: 20231029
  3. SINGULAIR [Suspect]
     Active Substance: MONTELUKAST SODIUM
     Indication: Cystic fibrosis
     Route: 064
     Dates: start: 20240516
  4. PANCRELIPASE [Suspect]
     Active Substance: PANCRELIPASE\PANCRELIPASE AMYLASE\PANCRELIPASE LIPASE\PANCRELIPASE PROTEASE
     Indication: Cystic fibrosis
     Dosage: 3 ANZ
     Route: 064
     Dates: start: 20231029
  5. COLISTIMETHATE SODIUM [Suspect]
     Active Substance: COLISTIMETHATE SODIUM
     Indication: Cystic fibrosis
     Route: 064
     Dates: start: 20231029
  6. KALYDECO [Suspect]
     Active Substance: IVACAFTOR
     Indication: Cystic fibrosis
     Dosage: 1 ANZ
     Route: 064
     Dates: start: 20231029
  7. CETIRIZINE HYDROCHLORIDE [Suspect]
     Active Substance: CETIRIZINE HYDROCHLORIDE
     Indication: Cystic fibrosis
     Route: 064
     Dates: start: 20231029
  8. ALBUTEROL [Suspect]
     Active Substance: ALBUTEROL
     Indication: Cystic fibrosis
     Dosage: 1 ANZ
     Route: 064
     Dates: start: 20231029, end: 20240510
  9. CREON [Suspect]
     Active Substance: PANCRELIPASE AMYLASE\PANCRELIPASE LIPASE\PANCRELIPASE PROTEASE
     Indication: Cystic fibrosis
     Dosage: 15ANZ
     Route: 064
     Dates: start: 20231029
  10. INNOVAIR [Suspect]
     Active Substance: BECLOMETHASONE DIPROPIONATE\FORMOTEROL
     Indication: Cystic fibrosis
     Dosage: 2 ANZ
     Route: 064
     Dates: start: 20231029
  11. PULMOZYME [Suspect]
     Active Substance: DORNASE ALFA
     Indication: Cystic fibrosis
     Dosage: 1 ANZ
     Route: 064
     Dates: start: 20231029, end: 20240516
  12. ELEXACAFTOR\IVACAFTOR\TEZACAFTOR [Suspect]
     Active Substance: ELEXACAFTOR\IVACAFTOR\TEZACAFTOR
     Indication: Cystic fibrosis
     Dosage: 2 ANZ
     Route: 064
     Dates: start: 20231029
  13. ESOMEPRAZOLE [Suspect]
     Active Substance: ESOMEPRAZOLE
     Indication: Cystic fibrosis
     Route: 064
     Dates: start: 20231029
  14. AMBROXOL HYDROCHLORIDE [Suspect]
     Active Substance: AMBROXOL HYDROCHLORIDE
     Indication: Cystic fibrosis
     Route: 064
     Dates: start: 20240516

REACTIONS (3)
  - Maternal exposure during pregnancy [Not Recovered/Not Resolved]
  - Amniotic fluid index increased [Not Recovered/Not Resolved]
  - Foetal macrosomia [Not Recovered/Not Resolved]

NARRATIVE: CASE EVENT DATE: 20231029
